FAERS Safety Report 4827298-X (Version None)
Quarter: 2005Q4

REPORT INFORMATION
  Report Type: 
  Country: None (occurrence: None)
  Receive Date: 20051114
  Receipt Date: 20051030
  Transmission Date: 20060501
  Serious: Yes (Hospitalization)
  Sender: FDA-Public Use
  Company Number: SA-KINGPHARMUSA00001-K200501427

PATIENT
  Age: 14 Year
  Sex: Male
  Weight: 32 kg

DRUGS (2)
  1. EPINEPHRINE [Suspect]
     Indication: HYPERSENSITIVITY
     Dosage: .3 ML, 10 MIN
     Route: 042
  2. DIPHENHYDRAMINE HCL [Concomitant]
     Dosage: 25 MG, 10 MIN
     Route: 042

REACTIONS (20)
  - BLOOD PRESSURE INCREASED [None]
  - CARDIAC ENZYMES INCREASED [None]
  - CARDIOMEGALY [None]
  - CHEST DISCOMFORT [None]
  - DYSPNOEA [None]
  - EJECTION FRACTION DECREASED [None]
  - ELECTROCARDIOGRAM ABNORMAL [None]
  - HAEMOPTYSIS [None]
  - HEART SOUNDS ABNORMAL [None]
  - INCORRECT ROUTE OF DRUG ADMINISTRATION [None]
  - MYOCARDIAL ISCHAEMIA [None]
  - OXYGEN SATURATION DECREASED [None]
  - PALPITATIONS [None]
  - PULMONARY OEDEMA [None]
  - RESPIRATORY DISTRESS [None]
  - TACHYCARDIA [None]
  - TACHYPNOEA [None]
  - TROPONIN T INCREASED [None]
  - VENTRICULAR DYSFUNCTION [None]
  - VENTRICULAR HYPOKINESIA [None]
